FAERS Safety Report 10173490 (Version 1)
Quarter: 2014Q2

REPORT INFORMATION
  Report Type: Spontaneous
  Country: US (occurrence: None)
  Receive Date: 20140514
  Receipt Date: 20140514
  Transmission Date: 20141212
  Serious: Yes (Hospitalization)
  Sender: FDA-Public Use
  Company Number: None

PATIENT
  Age: 67 Year
  Sex: Female

DRUGS (2)
  1. INSULIN [Suspect]
     Indication: HYPERGLYCAEMIA
     Dosage: 25 UNITS QAM + 10 UNITS QAM
     Route: 058
     Dates: end: 20140309
  2. INSULIN [Concomitant]

REACTIONS (2)
  - Blood glucose increased [None]
  - Blood glucose decreased [None]
